FAERS Safety Report 10976152 (Version 2)
Quarter: 2015Q2

REPORT INFORMATION
  Report Type: Spontaneous
  Country: US (occurrence: US)
  Receive Date: 20150401
  Receipt Date: 20150525
  Transmission Date: 20150821
  Serious: No
  Sender: FDA-Public Use
  Company Number: US-JNJFOC-20130513197

PATIENT
  Sex: Male
  Weight: 76.2 kg

DRUGS (3)
  1. RISPERDAL [Suspect]
     Active Substance: RISPERIDONE
     Indication: SLEEP DISORDER
     Route: 048
  2. OLANZAPINE. [Suspect]
     Active Substance: OLANZAPINE
     Indication: PRODUCT USED FOR UNKNOWN INDICATION
     Route: 065
  3. RISPERDAL [Suspect]
     Active Substance: RISPERIDONE
     Indication: HALLUCINATION
     Route: 048

REACTIONS (6)
  - Mood swings [Unknown]
  - Emotional distress [Unknown]
  - Fatigue [Unknown]
  - Gynaecomastia [Unknown]
  - Weight increased [Unknown]
  - Activities of daily living impaired [Unknown]
